FAERS Safety Report 12731253 (Version 1)
Quarter: 2016Q3

REPORT INFORMATION
  Report Type: Spontaneous
  Country: US (occurrence: US)
  Receive Date: 20160909
  Receipt Date: 20160909
  Transmission Date: 20161109
  Serious: No
  Sender: FDA-Public Use
  Company Number: None

PATIENT
  Age: 36 Year
  Sex: Female
  Weight: 81 kg

DRUGS (3)
  1. SERTRALINE [Concomitant]
     Active Substance: SERTRALINE HYDROCHLORIDE
  2. FEXIFENADINE [Concomitant]
  3. BUPROPION 150MG SR [Suspect]
     Active Substance: BUPROPION
     Indication: DEPRESSION
     Route: 048

REACTIONS (5)
  - Drug effect variable [None]
  - Drug ineffective [None]
  - Emotional disorder [None]
  - Product substitution issue [None]
  - Crying [None]

NARRATIVE: CASE EVENT DATE: 20160601
